FAERS Safety Report 10675370 (Version 1)
Quarter: 2014Q4

REPORT INFORMATION
  Report Type: Spontaneous
  Country: US (occurrence: US)
  Receive Date: 20141224
  Receipt Date: 20141224
  Transmission Date: 20150529
  Serious: Yes (Hospitalization)
  Sender: FDA-Public Use
  Company Number: US-B.I. PHARMACEUTICALS,INC./RIDGEFIELD-2014-BI-61730BP

PATIENT
  Age: 67 Year
  Sex: Female
  Weight: 108.86 kg

DRUGS (13)
  1. SPIRIVA [Suspect]
     Active Substance: TIOTROPIUM BROMIDE MONOHYDRATE
     Indication: CHRONIC OBSTRUCTIVE PULMONARY DISEASE
     Dosage: 18 MCG
     Route: 055
     Dates: start: 2013
  2. PREDNISONE. [Concomitant]
     Active Substance: PREDNISONE
     Indication: IMMUNE THROMBOCYTOPENIC PURPURA
     Dosage: 10 MG
     Route: 048
     Dates: start: 201411
  3. OMEPRAZOLE. [Concomitant]
     Active Substance: OMEPRAZOLE
     Indication: GASTROOESOPHAGEAL REFLUX DISEASE
     Dosage: 20 MG
     Route: 048
  4. SPIRIVA [Suspect]
     Active Substance: TIOTROPIUM BROMIDE MONOHYDRATE
     Dosage: 18 MCG
     Route: 048
     Dates: start: 20141219, end: 20141219
  5. FLUTICASONE PROPIONATE. [Concomitant]
     Active Substance: FLUTICASONE PROPIONATE
     Indication: SINUS DISORDER
     Dosage: 200 MCG
     Route: 045
  6. ATORVASTATIN [Concomitant]
     Active Substance: ATORVASTATIN
     Indication: BLOOD CHOLESTEROL INCREASED
     Dosage: 40 MG
     Route: 048
     Dates: start: 2011
  7. LORAZEPAM. [Concomitant]
     Active Substance: LORAZEPAM
     Indication: ANXIETY
     Dosage: 1 MG
     Route: 048
     Dates: start: 2011
  8. ISOSORBIDE [Concomitant]
     Active Substance: ISOSORBIDE
     Indication: HYPERTENSION
     Dosage: 30 MG
     Route: 048
     Dates: start: 2007
  9. LEVOTHYROXINE [Concomitant]
     Active Substance: LEVOTHYROXINE
     Indication: HYPOTHYROIDISM
     Dosage: 88 MCG
     Route: 048
     Dates: start: 2000
  10. METOPROLOL [Concomitant]
     Active Substance: METOPROLOL
     Indication: HYPERTENSION
     Dosage: 100 MG
     Route: 048
     Dates: start: 2012
  11. LISINOPRIL. [Concomitant]
     Active Substance: LISINOPRIL
     Indication: MITRAL VALVE PROLAPSE
     Dosage: 20 MG
     Route: 048
     Dates: start: 2009
  12. OXYBUTYNIN [Concomitant]
     Active Substance: OXYBUTYNIN
     Indication: HYPERTONIC BLADDER
     Dosage: 20 MG
     Route: 048
     Dates: start: 2004
  13. PROAIR HFA [Concomitant]
     Active Substance: ALBUTEROL SULFATE
     Indication: PRODUCT USED FOR UNKNOWN INDICATION
     Dosage: 720 MCG
     Route: 055

REACTIONS (3)
  - Urinary tract infection [Not Recovered/Not Resolved]
  - Incorrect route of drug administration [Recovered/Resolved]
  - Immune thrombocytopenic purpura [Recovered/Resolved]

NARRATIVE: CASE EVENT DATE: 20141030
